FAERS Safety Report 6160260-6 (Version None)
Quarter: 2009Q2

REPORT INFORMATION
  Report Type: 
  Country: None (occurrence: None)
  Receive Date: 20090420
  Receipt Date: 20090413
  Transmission Date: 20091009
  Serious: Yes (Other)
  Sender: FDA-Public Use
  Company Number: B0570489A

PATIENT
  Age: 51 Year
  Sex: Male

DRUGS (1)
  1. LEUKERAN [Suspect]
     Indication: CHRONIC LYMPHOCYTIC LEUKAEMIA
     Dosage: 2MG THREE TIMES PER DAY
     Route: 048
     Dates: start: 20080901, end: 20090220

REACTIONS (5)
  - DRUG TOXICITY [None]
  - HEARING IMPAIRED [None]
  - HYPOACUSIS [None]
  - TINNITUS [None]
  - WHITE BLOOD CELL COUNT DECREASED [None]
